FAERS Safety Report 12898047 (Version 2)
Quarter: 2016Q4

REPORT INFORMATION
  Report Type: Spontaneous
  Country: US (occurrence: US)
  Receive Date: 20161031
  Receipt Date: 20161103
  Transmission Date: 20170207
  Serious: Yes (Hospitalization, Other)
  Sender: FDA-Public Use
  Company Number: ALCN2016US007259

PATIENT
  Age: 85 Year
  Sex: Male
  Weight: 58.96 kg

DRUGS (4)
  1. ILEVRO [Concomitant]
     Active Substance: NEPAFENAC
     Indication: PREOPERATIVE CARE
     Dosage: UNK
     Route: 047
     Dates: start: 20161024, end: 20161025
  2. CIPROFLOXACIN. [Suspect]
     Active Substance: CIPROFLOXACIN
     Indication: PREOPERATIVE CARE
     Dosage: 1 GTT, QD
     Route: 047
     Dates: start: 20161024, end: 20161025
  3. RAMIPRIL. [Concomitant]
     Active Substance: RAMIPRIL
     Indication: HYPERTENSION
     Dosage: UNK
     Route: 065
  4. HYDRALAZINE [Concomitant]
     Active Substance: HYDRALAZINE HYDROCHLORIDE
     Indication: HYPERTENSION
     Route: 065

REACTIONS (11)
  - Cough [Unknown]
  - Loss of consciousness [Unknown]
  - Cardiovascular disorder [Unknown]
  - Pharyngeal oedema [Unknown]
  - Eyelid oedema [Unknown]
  - Seizure [Unknown]
  - Myocardial infarction [Unknown]
  - Urinary retention [Unknown]
  - Confusional state [Unknown]
  - Productive cough [Unknown]
  - Cardiac disorder [Unknown]

NARRATIVE: CASE EVENT DATE: 20161024
